FAERS Safety Report 15328161 (Version 1)
Quarter: 2018Q3

REPORT INFORMATION
  Report Type: Spontaneous
  Country: US (occurrence: US)
  Receive Date: 20180828
  Receipt Date: 20180828
  Transmission Date: 20181010
  Serious: No
  Sender: FDA-Public Use
  Company Number: US-ASTRAZENECA-2018SF03107

PATIENT
  Sex: Male

DRUGS (3)
  1. BRILINTA [Suspect]
     Active Substance: TICAGRELOR
     Indication: MYOCARDIAL INFARCTION
     Route: 048
     Dates: start: 201802
  2. CHONDROITIN [Concomitant]
     Active Substance: CHONDROITIN
  3. GLUCOSAMINE [Concomitant]
     Active Substance: GLUCOSAMINE

REACTIONS (3)
  - Pain in extremity [Unknown]
  - Arthropathy [Unknown]
  - Contusion [Unknown]
